FAERS Safety Report 6762403-X (Version None)
Quarter: 2010Q2

REPORT INFORMATION
  Report Type: 
  Country: None (occurrence: None)
  Receive Date: 20100609
  Receipt Date: 20100208
  Transmission Date: 20101027
  Serious: No
  Sender: FDA-Public Use
  Company Number: US-ABBOTT-10P-163-0625440-00

PATIENT
  Sex: Female

DRUGS (1)
  1. K-TAB [Suspect]
     Indication: MINERAL SUPPLEMENTATION
     Route: 048
     Dates: start: 20090701

REACTIONS (1)
  - MEDICATION RESIDUE [None]
